FAERS Safety Report 10433791 (Version 1)
Quarter: 2014Q3

REPORT INFORMATION
  Report Type: Spontaneous
  Country: US (occurrence: None)
  Receive Date: 20140904
  Receipt Date: 20140904
  Transmission Date: 20150326
  Serious: No
  Sender: FDA-Public Use
  Company Number: None

PATIENT
  Age: 48 Year
  Sex: Male
  Weight: 65.1 kg

DRUGS (3)
  1. BEVACIZUMAB(RHUMAB VEGF) [Suspect]
     Active Substance: BEVACIZUMAB
  2. CARBOPLATIN. [Suspect]
     Active Substance: CARBOPLATIN
  3. TAXOL [Suspect]
     Active Substance: PACLITAXEL

REACTIONS (4)
  - Pupil fixed [None]
  - Unresponsive to stimuli [None]
  - Cardiac arrest [None]
  - Respiratory arrest [None]

NARRATIVE: CASE EVENT DATE: 20140828
